FAERS Safety Report 9266155 (Version 1)
Quarter: 2013Q2

REPORT INFORMATION
  Report Type: Report from Study
  Country: ES (occurrence: ES)
  Receive Date: 20130502
  Receipt Date: 20130502
  Transmission Date: 20140414
  Serious: Yes (Other)
  Sender: FDA-Public Use
  Company Number: ES-ROCHE-1219977

PATIENT
  Sex: 0

DRUGS (6)
  1. CAPECITABINE [Suspect]
     Indication: SQUAMOUS CELL CARCINOMA
     Dosage: DAY 1 TO DAY 14, EVERY 21 DAYS
     Route: 065
  2. CDDP [Suspect]
     Indication: SQUAMOUS CELL CARCINOMA
     Dosage: DAY 1
     Route: 065
  3. CDDP [Suspect]
     Route: 065
  4. DOCETAXEL [Suspect]
     Indication: SQUAMOUS CELL CARCINOMA
     Dosage: DAY 1
     Route: 065
  5. CETUXIMAB [Concomitant]
     Indication: SQUAMOUS CELL CARCINOMA
     Dosage: LOADING DOSE
     Route: 065
  6. CETUXIMAB [Concomitant]
     Route: 065

REACTIONS (2)
  - Osteonecrosis [Unknown]
  - Mucosal inflammation [Unknown]
